FAERS Safety Report 23338992 (Version 1)
Quarter: 2023Q4

REPORT INFORMATION
  Report Type: Spontaneous
  Country: RS (occurrence: RS)
  Receive Date: 20231226
  Receipt Date: 20231226
  Transmission Date: 20240110
  Serious: Yes (Other)
  Sender: FDA-Public Use
  Company Number: RS-TEVA-VS-3138036

PATIENT

DRUGS (1)
  1. ETOPOSIDE [Suspect]
     Active Substance: ETOPOSIDE
     Indication: Diffuse large B-cell lymphoma
     Dosage: THERAPEUTIC CYCLE OF DA-EPOCH-R CHEMOTHERAPY COMPLETED
     Route: 042

REACTIONS (1)
  - Embolism venous [Recovering/Resolving]
